FAERS Safety Report 20471077 (Version 1)
Quarter: 2022Q1

REPORT INFORMATION
  Report Type: Spontaneous
  Country: UG (occurrence: UG)
  Receive Date: 20220214
  Receipt Date: 20220214
  Transmission Date: 20220424
  Serious: Yes (Other)
  Sender: FDA-Public Use
  Company Number: UG-BAYER-2022A010977

PATIENT
  Age: 26 Year
  Sex: Female

DRUGS (1)
  1. LEVONORGESTREL [Suspect]
     Active Substance: LEVONORGESTREL
     Indication: Contraception
     Dosage: UNKNOWN
     Route: 059
     Dates: start: 20210326

REACTIONS (7)
  - Device dislocation [Unknown]
  - Implant site abscess [Unknown]
  - Implant site infection [Unknown]
  - Implant site pain [Unknown]
  - Implant site swelling [Unknown]
  - Implant site pruritus [Unknown]
  - Postoperative wound infection [Unknown]

NARRATIVE: CASE EVENT DATE: 20210701
